FAERS Safety Report 10783686 (Version 1)
Quarter: 2015Q1

REPORT INFORMATION
  Report Type: Spontaneous
  Country: US (occurrence: US)
  Receive Date: 20150210
  Receipt Date: 20150210
  Transmission Date: 20150721
  Serious: Yes (Death)
  Sender: FDA-Public Use
  Company Number: US-MALLINCKRODT-T201501032

PATIENT
  Age: 77 Year
  Sex: Female

DRUGS (1)
  1. H.P. ACTHAR [Suspect]
     Active Substance: CORTICOTROPIN
     Indication: PROTEINURIA
     Dosage: 40 UNITS 2 TIMES A WEEK
     Route: 058
     Dates: start: 20150101

REACTIONS (4)
  - Malaise [None]
  - Dyspnoea [Fatal]
  - Death [Fatal]
  - Oxygen consumption increased [Fatal]

NARRATIVE: CASE EVENT DATE: 20150123
